FAERS Safety Report 8869412 (Version 1)
Quarter: 2012Q4

REPORT INFORMATION
  Report Type: 
  Country: US (occurrence: US)
  Receive Date: 20121026
  Receipt Date: 20121026
  Transmission Date: 20130627
  Serious: No
  Sender: FDA-Public Use
  Company Number: US-AMGEN-USASP2012044404

PATIENT
  Age: 26 Year
  Sex: Female
  Weight: 62.13 kg

DRUGS (4)
  1. ENBREL [Suspect]
     Indication: PRODUCT USED FOR UNKNOWN INDICATION
     Dosage: 50 mg/ml, qwk
     Route: 058
  2. FLEXERIL                           /00428402/ [Concomitant]
     Dosage: 5 mg, UNK
  3. ALBUTEROL                          /00139501/ [Concomitant]
     Dosage: 90 mug, UNK
  4. ADVAIR [Concomitant]
     Dosage: 100/50

REACTIONS (4)
  - Nausea [Recovered/Resolved]
  - Dizziness [Recovered/Resolved]
  - Injection site erythema [Unknown]
  - Injection site bruising [Unknown]
